FAERS Safety Report 15402110 (Version 2)
Quarter: 2018Q4

REPORT INFORMATION
  Report Type: Report from Study
  Country: US (occurrence: US)
  Receive Date: 20180919
  Receipt Date: 20181119
  Transmission Date: 20190204
  Serious: Yes (Other)
  Sender: FDA-Public Use
  Company Number: US-MALLINCKRODT-T201703172

PATIENT
  Age: 52 Year
  Sex: Male
  Weight: 109 kg

DRUGS (12)
  1. REPOSITORY CORTICOTROPIN INJECTION [Suspect]
     Active Substance: CORTICOTROPIN
     Dosage: 80 UNITS / 1 ML 2 TIMES PER WEEK  TUESDAY AND FRIDAY
     Route: 058
     Dates: start: 20180419
  2. REPOSITORY CORTICOTROPIN INJECTION [Suspect]
     Active Substance: CORTICOTROPIN
     Dosage: 80 UNITS / 1 ML 2 TIMES PER WEEK  TUESDAY AND FRIDAY
     Route: 058
     Dates: end: 20180706
  3. SYMBICORT [Concomitant]
     Active Substance: BUDESONIDE\FORMOTEROL FUMARATE DIHYDRATE
     Indication: CHRONIC OBSTRUCTIVE PULMONARY DISEASE
     Dosage: 160/4.5 MCG,  2 INHALATIONS, TWICE A DAY
     Route: 065
  4. LASIX [Suspect]
     Active Substance: FUROSEMIDE
     Indication: PRODUCT USED FOR UNKNOWN INDICATION
     Dosage: 40 MG
     Route: 065
  5. REPOSITORY CORTICOTROPIN INJECTION [Suspect]
     Active Substance: CORTICOTROPIN
     Indication: SARCOIDOSIS
     Dosage: 80 UNITS / ML, TWICE WEEKLY (TUESDAY AND FRIDAY)
     Route: 058
     Dates: start: 20170210, end: 201704
  6. REPOSITORY CORTICOTROPIN INJECTION [Suspect]
     Active Substance: CORTICOTROPIN
     Dosage: 80 UNITS / 1 ML 2 TIMES PER WEEK MONDAY AND THURSDAY
     Route: 058
     Dates: end: 2018
  7. REPOSITORY CORTICOTROPIN INJECTION [Suspect]
     Active Substance: CORTICOTROPIN
     Dosage: UNKNOWN
     Route: 065
     Dates: start: 201611
  8. VENTOLIN HFA [Concomitant]
     Active Substance: ALBUTEROL SULFATE
     Indication: PRODUCT USED FOR UNKNOWN INDICATION
     Dosage: 90 MCG, 4 TO 6 HOURS AS NEEDED
     Route: 065
  9. SPIRIVA [Concomitant]
     Active Substance: TIOTROPIUM BROMIDE MONOHYDRATE
     Indication: CHRONIC OBSTRUCTIVE PULMONARY DISEASE
     Dosage: 18 MCG, ONCE A DAY
     Route: 065
  10. NICOTEX CHEW GUM [Concomitant]
     Indication: SMOKING CESSATION THERAPY
     Dosage: UNKNOWN
     Route: 065
  11. REPOSITORY CORTICOTROPIN INJECTION [Suspect]
     Active Substance: CORTICOTROPIN
     Dosage: 80 UNITS / ML, TWICE WEEKLY (MONDAY/THURSDAY)
     Route: 058
     Dates: start: 201707, end: 20170801
  12. REPOSITORY CORTICOTROPIN INJECTION [Suspect]
     Active Substance: CORTICOTROPIN
     Dosage: 80 UNITS / ML, TWICE WEEKLY (TUESDAY AND FRIDAY)
     Route: 058
     Dates: start: 2017, end: 20171205

REACTIONS (19)
  - Condition aggravated [Recovering/Resolving]
  - Muscle spasms [Unknown]
  - Sarcoidosis [Recovering/Resolving]
  - Fatigue [Not Recovered/Not Resolved]
  - Dyspnoea [Recovering/Resolving]
  - Cardiac failure congestive [Recovering/Resolving]
  - Fluid retention [Recovering/Resolving]
  - Insomnia [Recovering/Resolving]
  - Erectile dysfunction [Unknown]
  - Asthma [Unknown]
  - Oedema peripheral [Not Recovered/Not Resolved]
  - Product dose omission [Recovering/Resolving]
  - Hypotension [Unknown]
  - Weight decreased [Recovering/Resolving]
  - Photosensitivity reaction [Recovering/Resolving]
  - Decreased appetite [Recovering/Resolving]
  - Rash [Not Recovered/Not Resolved]
  - Diabetes mellitus [Not Recovered/Not Resolved]
  - Accident [Recovering/Resolving]

NARRATIVE: CASE EVENT DATE: 20170211
